FAERS Safety Report 5164976-X (Version None)
Quarter: 2006Q4

REPORT INFORMATION
  Report Type: 
  Country: None (occurrence: None)
  Receive Date: 20061127
  Receipt Date: 20061109
  Transmission Date: 20070319
  Serious: Yes (Other)
  Sender: FDA-Public Use
  Company Number: 2006RR-04504

PATIENT
  Age: 7 Year
  Sex: Male

DRUGS (2)
  1. LISINOPRIL [Suspect]
     Indication: PROTEINURIA
     Dosage: 0.08  MG/KG, QD
  2. LOSARTAN POSTASSIUM [Suspect]
     Indication: PROTEINURIA
     Dosage: 0.08 MG/KG, QD

REACTIONS (8)
  - ABDOMINAL PAIN [None]
  - DRUG INTERACTION [None]
  - FATIGUE [None]
  - HYPOTENSION [None]
  - NAUSEA [None]
  - RENAL FAILURE ACUTE [None]
  - RENAL TUBULAR NECROSIS [None]
  - SUPRAPUBIC PAIN [None]
